FAERS Safety Report 23047705 (Version 1)
Quarter: 2023Q4

REPORT INFORMATION
  Report Type: 
  Country: AU (occurrence: AU)
  Receive Date: 20231010
  Receipt Date: 20231010
  Transmission Date: 20240110
  Serious: Yes (Other)
  Sender: FDA-Public Use
  Company Number: AU-CELLTRION INC.-2023AU019223

PATIENT

DRUGS (3)
  1. RITUXIMAB [Suspect]
     Active Substance: RITUXIMAB
     Indication: Product used for unknown indication
  2. METHYLPREDNISOLONE [Concomitant]
     Active Substance: METHYLPREDNISOLONE
  3. PREDNISOLONE [Concomitant]
     Active Substance: PREDNISOLONE

REACTIONS (8)
  - Neuromyelitis optica spectrum disorder [Unknown]
  - Blindness [Unknown]
  - Ataxia [Unknown]
  - CD19 lymphocyte count abnormal [Unknown]
  - Disorientation [Unknown]
  - Eye pain [Unknown]
  - Pupillary reflex impaired [Unknown]
  - Vision blurred [Unknown]
